FAERS Safety Report 9606529 (Version 2)
Quarter: 2013Q4

REPORT INFORMATION
  Report Type: Spontaneous
  Country: US (occurrence: US)
  Receive Date: 20131008
  Receipt Date: 20131008
  Transmission Date: 20140711
  Serious: No
  Sender: FDA-Public Use
  Company Number: US-AMGEN-USASP2013056216

PATIENT
  Age: 86 Year
  Sex: Female

DRUGS (9)
  1. PROLIA [Suspect]
     Indication: OSTEOPOROSIS POSTMENOPAUSAL
     Route: 065
  2. BENICAR [Concomitant]
  3. FOSAMAX [Concomitant]
  4. DETROL [Concomitant]
  5. LEVOXYL [Concomitant]
  6. PROCRIT                            /00909301/ [Concomitant]
  7. ALLEGRA [Concomitant]
     Dosage: UNK UNK, AS NECESSARY
  8. MULTIVITAMIN                       /07504101/ [Concomitant]
  9. CALCIUM WITH VITAMIN D             /00944201/ [Concomitant]

REACTIONS (9)
  - Swelling [Unknown]
  - Wound drainage [Unknown]
  - Discomfort [Unknown]
  - Foot deformity [Unknown]
  - Fungal skin infection [Unknown]
  - Local swelling [Unknown]
  - Rash [Unknown]
  - Cellulitis [Recovered/Resolved]
  - Erythema [Unknown]
